FAERS Safety Report 9457500 (Version 2)
Quarter: 2013Q3

REPORT INFORMATION
  Report Type: Spontaneous
  Country: US (occurrence: US)
  Receive Date: 20130814
  Receipt Date: 20130920
  Transmission Date: 20140515
  Serious: Yes (Hospitalization)
  Sender: FDA-Public Use
  Company Number: US-009507513-1308USA005341

PATIENT
  Sex: Female

DRUGS (3)
  1. DULERA [Suspect]
     Indication: EMPHYSEMA
     Dosage: 2 PUFFS ,(2 PUFFS IN PM/1PM)
     Route: 055
     Dates: start: 201208
  2. HYDROXYZINE [Concomitant]
  3. CIPROFLOXACIN [Concomitant]

REACTIONS (5)
  - Dehydration [Unknown]
  - Pulmonary congestion [Unknown]
  - Dyspnoea [Not Recovered/Not Resolved]
  - Product quality issue [Unknown]
  - Drug dose omission [Unknown]
